FAERS Safety Report 5567260-5 (Version None)
Quarter: 2007Q4

REPORT INFORMATION
  Report Type: 
  Country: None (occurrence: None)
  Receive Date: 20071219
  Receipt Date: 20071210
  Transmission Date: 20080405
  Serious: Yes (Other)
  Sender: FDA-Public Use
  Company Number: US-WYE-H01651607

PATIENT
  Age: 20 Year
  Sex: Female

DRUGS (2)
  1. INDERAL [Suspect]
     Dosage: UNKNOWN
     Route: 048
  2. PAXIL [Suspect]
     Indication: BIPOLAR I DISORDER
     Route: 048
     Dates: start: 20070701

REACTIONS (5)
  - DRUG INEFFECTIVE [None]
  - HALLUCINATION [None]
  - MYDRIASIS [None]
  - PSYCHOMOTOR HYPERACTIVITY [None]
  - SOMNOLENCE [None]
